FAERS Safety Report 4791146-7 (Version None)
Quarter: 2005Q4

REPORT INFORMATION
  Report Type: 
  Country: None (occurrence: None)
  Receive Date: 20051005
  Receipt Date: 20050926
  Transmission Date: 20060501
  Serious: Yes (Hospitalization)
  Sender: FDA-Public Use
  Company Number: CHWYE990119SEP05

PATIENT
  Age: 85 Year
  Sex: Female

DRUGS (7)
  1. EFFEXOR [Suspect]
     Indication: DEPRESSION
     Dosage: 75 MG 1X PER 1 DAY ORAL
     Route: 048
     Dates: start: 20050314, end: 20050325
  2. EFFEXOR [Suspect]
     Indication: PSYCHOGENIC PAIN DISORDER
     Dosage: 75 MG 1X PER 1 DAY ORAL
     Route: 048
     Dates: start: 20050314, end: 20050325
  3. CO-DAFALGAN [Concomitant]
  4. LEXOTANIL (BROMAZEPAM) [Concomitant]
  5. METOPROLOL SUCCINATE [Concomitant]
  6. AMLODIPINE [Concomitant]
  7. ASPIRIN [Concomitant]

REACTIONS (10)
  - ASTHENIA [None]
  - CONDITION AGGRAVATED [None]
  - DEHYDRATION [None]
  - DIFFICULTY IN WALKING [None]
  - DRUG INTOLERANCE [None]
  - GENERAL PHYSICAL HEALTH DETERIORATION [None]
  - HELICOBACTER PYLORI IDENTIFICATION TEST POSITIVE [None]
  - OCCULT BLOOD [None]
  - OESOPHAGEAL ACHALASIA [None]
  - RENAL FAILURE ACUTE [None]
